FAERS Safety Report 7475112-9 (Version None)
Quarter: 2011Q1

REPORT INFORMATION
  Report Type: 
  Country: None (occurrence: None)
  Receive Date: 20110302
  Receipt Date: 20101222
  Transmission Date: 20110831
  Serious: Yes (Hospitalization)
  Sender: FDA-Public Use
  Company Number: 163-21880-10080923

PATIENT
  Age: 61 Year
  Sex: Female

DRUGS (4)
  1. REVLIMID [Suspect]
  2. REVLIMID [Suspect]
  3. REVLIMID [Suspect]
     Indication: MULTIPLE MYELOMA
     Dosage: 10 MG, DAILY X 3 WEEKS/OFF 1 WEEK, PO
     Route: 048
     Dates: start: 20100617
  4. REVLIMID [Suspect]

REACTIONS (8)
  - MUSCLE SPASMS [None]
  - VOMITING [None]
  - ABDOMINAL PAIN [None]
  - CONSTIPATION [None]
  - DEHYDRATION [None]
  - EYE SWELLING [None]
  - OCULAR HYPERAEMIA [None]
  - DIARRHOEA [None]
